FAERS Safety Report 16342101 (Version 2)
Quarter: 2019Q3

REPORT INFORMATION
  Report Type: Spontaneous
  Country: US (occurrence: US)
  Receive Date: 20190522
  Receipt Date: 20190719
  Transmission Date: 20191004
  Serious: Yes (Hospitalization, Other)
  Sender: FDA-Public Use
  Company Number: US-ASTRAZENECA-2019SE74524

PATIENT
  Sex: Male
  Weight: 83.6 kg

DRUGS (3)
  1. TEMODAR [Concomitant]
     Active Substance: TEMOZOLOMIDE
     Indication: GLIOMA
     Dates: start: 20190524, end: 20190603
  2. LYNPARZA [Suspect]
     Active Substance: OLAPARIB
     Indication: OLIGODENDROGLIOMA
     Route: 048
     Dates: start: 20190318, end: 20190404
  3. LYNPARZA [Suspect]
     Active Substance: OLAPARIB
     Indication: OLIGODENDROGLIOMA
     Route: 048
     Dates: start: 20190524, end: 20190606

REACTIONS (5)
  - Malignant neoplasm progression [Unknown]
  - Pancytopenia [Recovering/Resolving]
  - Bone marrow failure [Recovered/Resolved]
  - Off label use [Unknown]
  - Product use in unapproved indication [Unknown]
